FAERS Safety Report 18978875 (Version 3)
Quarter: 2021Q3

REPORT INFORMATION
  Report Type: Report from Study
  Country: US (occurrence: US)
  Receive Date: 20210308
  Receipt Date: 20210803
  Transmission Date: 20211014
  Serious: Yes (Other)
  Sender: FDA-Public Use
  Company Number: US-EMD SERONO-E2B_80050610

PATIENT
  Sex: Female
  Weight: 75 kg

DRUGS (7)
  1. REBIF [Suspect]
     Active Substance: INTERFERON BETA-1A
     Route: 058
     Dates: end: 2018
  2. NAPROXEN. [Concomitant]
     Active Substance: NAPROXEN
     Indication: PRODUCT USED FOR UNKNOWN INDICATION
     Route: 048
  3. REBIF [Suspect]
     Active Substance: INTERFERON BETA-1A
     Route: 058
     Dates: start: 20200205
  4. REBIF [Suspect]
     Active Substance: INTERFERON BETA-1A
     Indication: MULTIPLE SCLEROSIS
     Route: 058
     Dates: start: 20071009
  5. REBIF [Suspect]
     Active Substance: INTERFERON BETA-1A
     Route: 058
     Dates: start: 2009
  6. REBIF [Suspect]
     Active Substance: INTERFERON BETA-1A
     Route: 058
     Dates: end: 20200131
  7. REBIF [Suspect]
     Active Substance: INTERFERON BETA-1A
     Dosage: REBIF PRE FILLED SYRINGE
     Route: 058
     Dates: end: 20160918

REACTIONS (7)
  - Lymphocyte count decreased [Unknown]
  - Liver function test increased [Not Recovered/Not Resolved]
  - Autoimmune thyroiditis [Unknown]
  - Ovarian cyst [Recovering/Resolving]
  - Treatment noncompliance [Recovered/Resolved]
  - Uterine leiomyoma [Unknown]
  - Limb reconstructive surgery [Unknown]
